FAERS Safety Report 14614838 (Version 1)
Quarter: 2018Q1

REPORT INFORMATION
  Report Type: Spontaneous
  Country: GB (occurrence: GB)
  Receive Date: 20180308
  Receipt Date: 20180308
  Transmission Date: 20180509
  Serious: Yes (Other)
  Sender: FDA-Public Use
  Company Number: GB-PFIZER INC-2018094125

PATIENT
  Age: 40 Year
  Sex: Male
  Weight: 77 kg

DRUGS (11)
  1. COSMOCOL [Concomitant]
     Dosage: UNK (1- 3 ORANGE LEMON AND LIME ORAL POWDER SACHETS DAILY IN DIVIDED DOSES)
     Dates: start: 20171215
  2. NAPROXEN. [Concomitant]
     Active Substance: NAPROXEN
     Dosage: 1000 MG, 1X/DAY (WITH MEALS)
     Dates: start: 20171215
  3. CO-AMOXICLAV /00756801/ [Concomitant]
     Active Substance: AMOXICILLIN\CLAVULANIC ACID
     Dosage: 3 DF, 1X/DAY
     Dates: start: 20180206
  4. MORPHINE [Concomitant]
     Active Substance: MORPHINE
     Dosage: 20 MG, 1X/DAY
     Dates: start: 20180125
  5. AMITRIPTYLINE [Concomitant]
     Active Substance: AMITRIPTYLINE
     Dosage: 10 MG, UNK (1-2 AT NIGHT)
     Dates: start: 20171215
  6. CIPROFLOXACIN. [Concomitant]
     Active Substance: CIPROFLOXACIN
     Dosage: 1000 MG, 1X/DAY
     Dates: start: 20180125
  7. GABAPENTIN. [Suspect]
     Active Substance: GABAPENTIN
     Dosage: 300 MG, UNK
  8. NYSTAN [Concomitant]
     Active Substance: NYSTATIN
     Dosage: 4 ML, 1X/DAY (DROPPED INTO THE MOUTH)
     Route: 048
     Dates: start: 20180105
  9. COCODAMOL [Concomitant]
     Active Substance: ACETAMINOPHEN\CODEINE PHOSPHATE
     Dosage: UNK, DAILY (1-2 UP TO FOUR TIMES DAILY)
     Dates: start: 20171215
  10. NAPROXEN. [Concomitant]
     Active Substance: NAPROXEN
     Dosage: 500 MG, 1X/DAY
     Dates: start: 20180119
  11. OTOMIZE [Concomitant]
     Active Substance: DEXAMETHASONE\NEOMYCIN SULFATE
     Dosage: 3 DF, 1X/DAY
     Dates: start: 20171123

REACTIONS (3)
  - Depression suicidal [Recovered/Resolved]
  - Aggression [Recovered/Resolved]
  - Depressive symptom [Recovered/Resolved]

NARRATIVE: CASE EVENT DATE: 20180111
